FAERS Safety Report 10685100 (Version 1)
Quarter: 2014Q4

REPORT INFORMATION
  Report Type: Spontaneous
  Country: US (occurrence: None)
  Receive Date: 20141230
  Receipt Date: 20141230
  Transmission Date: 20150529
  Serious: Yes (Hospitalization)
  Sender: FDA-Public Use
  Company Number: None

PATIENT
  Age: 82 Year
  Sex: Female
  Weight: 58.97 kg

DRUGS (7)
  1. VITAMIN D3 [Concomitant]
     Active Substance: CHOLECALCIFEROL
  2. BIOTIN [Concomitant]
     Active Substance: BIOTIN
  3. COD LIVER OIL [Concomitant]
     Active Substance: COD LIVER OIL
  4. LUTEIN [Concomitant]
     Active Substance: LUTEIN
  5. LEVOFLOXACIN. [Suspect]
     Active Substance: LEVOFLOXACIN
     Indication: EAR PAIN
     Dosage: 1 TABLET DAILY FOR 10 DAYS
     Route: 048
  6. VITAMIN B12 [Concomitant]
     Active Substance: CYANOCOBALAMIN
  7. EVISTA [Concomitant]
     Active Substance: RALOXIFENE HYDROCHLORIDE

REACTIONS (2)
  - Asthenia [None]
  - Confusional state [None]

NARRATIVE: CASE EVENT DATE: 20141127
